FAERS Safety Report 20194102 (Version 2)
Quarter: 2022Q1

REPORT INFORMATION
  Report Type: Spontaneous
  Country: US (occurrence: US)
  Receive Date: 20211216
  Receipt Date: 20220114
  Transmission Date: 20220423
  Serious: No
  Sender: FDA-Public Use
  Company Number: US-SA-SAC20211210000122

PATIENT
  Sex: Female
  Weight: 64.4 kg

DRUGS (1)
  1. DUPIXENT [Suspect]
     Active Substance: DUPILUMAB
     Indication: Dermatitis atopic
     Dosage: 300 MG, QOW
     Route: 058
     Dates: start: 20211122

REACTIONS (8)
  - Pruritus [Unknown]
  - Sleep disorder [Unknown]
  - Burning sensation [Unknown]
  - Hot flush [Unknown]
  - Fatigue [Unknown]
  - Parosmia [Unknown]
  - Rash [Recovering/Resolving]
  - Drug ineffective [Unknown]
